FAERS Safety Report 17682788 (Version 1)
Quarter: 2020Q2

REPORT INFORMATION
  Report Type: Spontaneous
  Country: FR (occurrence: FR)
  Receive Date: 20200419
  Receipt Date: 20200419
  Transmission Date: 20200714
  Serious: Yes (Other)
  Sender: FDA-Public Use
  Company Number: FR-UCBSA-089407

PATIENT
  Sex: Female
  Weight: 3.2 kg

DRUGS (4)
  1. LEVETIRACETAM. [Suspect]
     Active Substance: LEVETIRACETAM
     Route: 064
  2. VALPROATE [Concomitant]
     Active Substance: VALPROIC ACID
     Route: 064
  3. LAMOTRIGINE. [Concomitant]
     Active Substance: LAMOTRIGINE
     Route: 064
  4. CLOBAZAM. [Concomitant]
     Active Substance: CLOBAZAM
     Route: 064

REACTIONS (3)
  - Hypoglycaemia [Recovered/Resolved]
  - Hypotonia [Recovered/Resolved]
  - Maternal exposure during pregnancy [Unknown]
